FAERS Safety Report 4377502-X (Version None)
Quarter: 2004Q2

REPORT INFORMATION
  Report Type: 
  Country: None (occurrence: None)
  Receive Date: 20040602
  Receipt Date: 20031001
  Transmission Date: 20050107
  Serious: Yes (Other)
  Sender: FDA-Public Use
  Company Number: JRFUSA2000009605

PATIENT
  Age: 54 Year
  Sex: Female
  Weight: 112.4921 kg

DRUGS (11)
  1. PROPULSID [Suspect]
     Indication: GASTROOESOPHAGEAL REFLUX DISEASE
     Dosage: SEE IMAGE
     Dates: start: 19960301, end: 20000301
  2. PROPULSID [Suspect]
     Indication: GASTROOESOPHAGEAL REFLUX DISEASE
     Dosage: SEE IMAGE
     Dates: end: 20000324
  3. PROPULSID [Suspect]
     Indication: GASTROOESOPHAGEAL REFLUX DISEASE
     Dosage: SEE IMAGE
     Dates: start: 19960501
  4. DEMADEX [Concomitant]
  5. LANSOPRAZOLE [Concomitant]
  6. ALLEGRA [Concomitant]
  7. LIPITOR [Concomitant]
  8. K-DUR 10 [Concomitant]
  9. PROPRANOLOL [Concomitant]
  10. SERTRALINE HCL [Concomitant]
  11. LEVBID (HYOSCAMINE SULFATE) [Concomitant]

REACTIONS (2)
  - ARRHYTHMIA [None]
  - ELECTROCARDIOGRAM QT PROLONGED [None]
